FAERS Safety Report 23962385 (Version 3)
Quarter: 2024Q3

REPORT INFORMATION
  Report Type: Report from Study
  Country: US (occurrence: US)
  Receive Date: 20240611
  Receipt Date: 20240805
  Transmission Date: 20241017
  Serious: Yes (Hospitalization)
  Sender: JOHNSON AND JOHNSON
  Company Number: US-JNJFOC-20240607407

PATIENT
  Age: 80 Year
  Sex: Male
  Weight: 55.5 kg

DRUGS (19)
  1. ABIRATERONE ACETATE [Suspect]
     Active Substance: ABIRATERONE ACETATE
     Indication: Hormone-dependent prostate cancer
     Route: 048
     Dates: start: 20230104
  2. ABEMACICLIB [Suspect]
     Active Substance: ABEMACICLIB
     Indication: Prostate cancer
     Dates: start: 20230104, end: 20230131
  3. ABEMACICLIB [Suspect]
     Active Substance: ABEMACICLIB
     Dates: start: 20230216, end: 20231010
  4. ABEMACICLIB [Suspect]
     Active Substance: ABEMACICLIB
     Dates: start: 20231107, end: 20231204
  5. ABEMACICLIB [Suspect]
     Active Substance: ABEMACICLIB
     Dates: start: 20240102, end: 20240227
  6. PREDNISOLONE [Concomitant]
     Active Substance: PREDNISOLONE
     Indication: Retinal detachment
     Route: 048
     Dates: start: 20230105
  7. PREDNISOLONE [Concomitant]
     Active Substance: PREDNISOLONE
     Indication: Prostate cancer
     Dates: start: 20230420
  8. ASPIRIN [Concomitant]
     Active Substance: ASPIRIN
     Dates: start: 1987
  9. ACETAMINOPHEN\CODEINE PHOSPHATE [Concomitant]
     Active Substance: ACETAMINOPHEN\CODEINE PHOSPHATE
     Dates: start: 20221201
  10. CYANOCOBALAMIN [Concomitant]
     Active Substance: CYANOCOBALAMIN
     Dates: start: 20210620
  11. IBUPROFEN [Concomitant]
     Active Substance: IBUPROFEN
     Indication: Pain in extremity
     Dates: start: 20221201
  12. CHLORAMPHENICOL [Concomitant]
     Active Substance: CHLORAMPHENICOL
     Dates: start: 20230420
  13. FUROSEMIDE [Concomitant]
     Active Substance: FUROSEMIDE
     Indication: Oedema
     Dates: start: 20230428
  14. BROMHEXINE HYDROCHLORIDE [Concomitant]
     Active Substance: BROMHEXINE HYDROCHLORIDE
     Dates: start: 20230511
  15. SENEGA AND AMMONIA [Concomitant]
     Indication: Cough
     Dates: start: 20230711
  16. VITAMINS NOS [Concomitant]
     Active Substance: VITAMINS
     Dates: start: 20230813
  17. CEPHALEXIN [Concomitant]
     Active Substance: CEPHALEXIN
     Indication: Prophylaxis
     Dates: start: 20231020
  18. MIRTAZAPINE [Concomitant]
     Active Substance: MIRTAZAPINE
     Indication: Dysgeusia
     Dates: start: 20231206
  19. LEUPROLIDE ACETATE [Concomitant]
     Active Substance: ISOPROPYL ALCOHOL\LEUPROLIDE ACETATE
     Indication: Hormone-dependent prostate cancer
     Dates: start: 20221107

REACTIONS (1)
  - Fall [Recovered/Resolved]

NARRATIVE: CASE EVENT DATE: 20240520
